FAERS Safety Report 7237644-8 (Version None)
Quarter: 2011Q1

REPORT INFORMATION
  Report Type: 
  Country: None (occurrence: None)
  Receive Date: 20110121
  Receipt Date: 20110114
  Transmission Date: 20110831
  Serious: Yes (Death)
  Sender: FDA-Public Use
  Company Number: PHHY2011BR03376

PATIENT
  Sex: Female

DRUGS (1)
  1. DIOVAN HCT [Suspect]
     Indication: DIABETES MELLITUS
     Dosage: 1 DF, QD

REACTIONS (5)
  - PULMONARY OEDEMA [None]
  - COUGH [None]
  - PNEUMONIA [None]
  - DIABETES MELLITUS [None]
  - BLOOD PRESSURE INCREASED [None]
